FAERS Safety Report 8504891-4 (Version None)
Quarter: 2012Q3

REPORT INFORMATION
  Report Type: 
  Country: None (occurrence: None)
  Receive Date: 20120712
  Receipt Date: 20120706
  Transmission Date: 20120928
  Serious: Yes (Other)
  Sender: FDA-Public Use
  Company Number: PHHY2012BR056625

PATIENT
  Sex: Male

DRUGS (5)
  1. XOLAIR [Suspect]
     Indication: HYPERSENSITIVITY
     Dosage: 1 DF, QW
  2. BEROTEC [Concomitant]
     Indication: ASTHMA
  3. COMBIVENT [Concomitant]
     Indication: ASTHMA
     Dosage: 1 DF, BID
  4. FORMOTEROL FUMARATE [Suspect]
     Indication: CHRONIC OBSTRUCTIVE PULMONARY DISEASE
     Dosage: 1 DF, BID
  5. MAXSULID [Concomitant]
     Indication: ANTIINFLAMMATORY THERAPY
     Dosage: 1 DF, TID
     Route: 048

REACTIONS (7)
  - EMPHYSEMA [None]
  - ASTHMA [None]
  - PAIN [None]
  - BRONCHITIS [None]
  - HYPERSENSITIVITY [None]
  - ANOSMIA [None]
  - BACK PAIN [None]
